FAERS Safety Report 7222770-X (Version None)
Quarter: 2011Q1

REPORT INFORMATION
  Report Type: 
  Country: None (occurrence: None)
  Receive Date: 20110106
  Receipt Date: 20110106
  Transmission Date: 20110831
  Serious: Yes (Hospitalization)
  Sender: FDA-Public Use
  Company Number: None

PATIENT
  Age: 69 Year
  Sex: Male
  Weight: 93.7 kg

DRUGS (15)
  1. COREG [Concomitant]
  2. TYLENOL-500 [Concomitant]
  3. PLAVIX [Concomitant]
  4. DOXAZOSIN [Concomitant]
  5. VESICARE [Concomitant]
  6. ASPIRIN [Concomitant]
  7. DUCOLOX [Concomitant]
  8. LIPITOR [Concomitant]
  9. LITHIUM [Suspect]
     Indication: BIPOLAR DISORDER
     Dosage: 300MG/600MG QAM QHS PO
     Route: 048
  10. JANUVIA [Concomitant]
  11. PEPCID [Concomitant]
  12. CLONIDINE [Concomitant]
  13. LOVENOX [Concomitant]
  14. HYDROCHLOROTHIAZIDE [Concomitant]
  15. AVAPRO [Concomitant]

REACTIONS (5)
  - CONFUSIONAL STATE [None]
  - URINARY TRACT INFECTION [None]
  - HALLUCINATION [None]
  - RENAL FAILURE ACUTE [None]
  - TOXICITY TO VARIOUS AGENTS [None]
